FAERS Safety Report 7055879-4 (Version None)
Quarter: 2010Q4

REPORT INFORMATION
  Report Type: 
  Country: None (occurrence: None)
  Receive Date: 20101021
  Receipt Date: 20101013
  Transmission Date: 20110411
  Serious: No
  Sender: FDA-Public Use
  Company Number: US-B.I. PHARMACEUTICALS,INC./RIDGEFIELD-2010-BP-11544BP

PATIENT

DRUGS (1)
  1. CATAPRES-TTS-1 [Suspect]
     Dosage: 0.3 MG
     Route: 061

REACTIONS (1)
  - INCORRECT DOSE ADMINISTERED [None]
